FAERS Safety Report 10025786 (Version 7)
Quarter: 2015Q2

REPORT INFORMATION
  Report Type: Spontaneous
  Country: US (occurrence: US)
  Receive Date: 20140320
  Receipt Date: 20150514
  Transmission Date: 20150821
  Serious: Yes (Hospitalization, Other)
  Sender: FDA-Public Use
  Company Number: US-009507513-1403USA005974

PATIENT
  Sex: Female
  Weight: 56.24 kg

DRUGS (5)
  1. CALCIUM (UNSPECIFIED) [Concomitant]
     Active Substance: CALCIUM
     Dosage: 1200 IU, UNK
     Dates: start: 1987
  2. FOSAMAX [Suspect]
     Active Substance: ALENDRONATE SODIUM
     Indication: OSTEOPOROSIS
     Dosage: 10 MG, QD
     Route: 048
     Dates: start: 199701, end: 200102
  3. FOSAMAX [Suspect]
     Active Substance: ALENDRONATE SODIUM
     Dosage: 70 MG, QW
     Route: 048
     Dates: start: 200102
  4. VITAMIN D [Concomitant]
     Active Substance: CHOLECALCIFEROL
     Dosage: 1000 IU, UNK
     Dates: start: 1989
  5. ALENDRONATE SODIUM. [Suspect]
     Active Substance: ALENDRONATE SODIUM
     Indication: OSTEOPOROSIS
     Dosage: 70 MG, QW
     Route: 048
     Dates: start: 20081208, end: 2011

REACTIONS (15)
  - Osteopenia [Unknown]
  - Femur fracture [Recovered/Resolved]
  - Humerus fracture [Unknown]
  - Stress urinary incontinence [Unknown]
  - Intervertebral disc disorder [Unknown]
  - Constipation [Unknown]
  - Premature menopause [Unknown]
  - Intramedullary rod insertion [Unknown]
  - Vertebroplasty [Unknown]
  - Femur fracture [Unknown]
  - Kyphosis [Unknown]
  - Spinal osteoarthritis [Unknown]
  - Medical device pain [Unknown]
  - Intramedullary rod insertion [Unknown]
  - Spinal compression fracture [Unknown]

NARRATIVE: CASE EVENT DATE: 2003
